FAERS Safety Report 10078225 (Version 1)
Quarter: 2014Q2

REPORT INFORMATION
  Report Type: Spontaneous
  Country: GB (occurrence: GB)
  Receive Date: 20140415
  Receipt Date: 20140415
  Transmission Date: 20141212
  Serious: Yes (Other)
  Sender: FDA-Public Use
  Company Number: GB-ROCHE-1379352

PATIENT
  Age: 37 Year
  Sex: Male

DRUGS (6)
  1. PEGASYS [Suspect]
     Indication: HEPATITIS C
     Route: 058
     Dates: start: 20140113, end: 20140311
  2. RIBAVIRIN [Suspect]
     Indication: HEPATITIS C
     Route: 048
     Dates: start: 20140113, end: 20140311
  3. INCIVO [Suspect]
     Indication: HEPATITIS C
     Route: 048
     Dates: start: 20140113, end: 20140311
  4. METHADONE [Concomitant]
     Route: 065
  5. SALBUTAMOL [Concomitant]
  6. SERTRALINE [Concomitant]

REACTIONS (4)
  - Sensory disturbance [Recovered/Resolved]
  - Elevated mood [Recovered/Resolved]
  - Irritability [Recovered/Resolved]
  - Rash [Unknown]
